FAERS Safety Report 25123633 (Version 1)
Quarter: 2025Q1

REPORT INFORMATION
  Report Type: Spontaneous
  Country: US (occurrence: None)
  Receive Date: 20250325
  Receipt Date: 20250325
  Transmission Date: 20250409
  Serious: No
  Sender: FDA-CTU
  Company Number: None

PATIENT
  Age: 69 Year
  Sex: Female
  Weight: 120.66 kg

DRUGS (27)
  1. SERTRALINE HYDROCHLORIDE [Suspect]
     Active Substance: SERTRALINE HYDROCHLORIDE
     Indication: Depression
     Dosage: OTHER QUANTITY : 1 EVERY DAY;?FREQUENCY : DAILY;?
     Route: 048
     Dates: start: 202501
  2. SERTRALINE HYDROCHLORIDE [Suspect]
     Active Substance: SERTRALINE HYDROCHLORIDE
     Indication: Post-traumatic stress disorder
  3. POTASSIUM CHLORIDE [Concomitant]
     Active Substance: POTASSIUM CHLORIDE
  4. FUROSEMIDE [Concomitant]
     Active Substance: FUROSEMIDE
  5. LOSARTAN [Concomitant]
     Active Substance: LOSARTAN
  6. BUDESONIDE [Concomitant]
     Active Substance: BUDESONIDE
  7. MONTELUKAST [Concomitant]
     Active Substance: MONTELUKAST
  8. PANTOPRAZOLE [Concomitant]
     Active Substance: PANTOPRAZOLE
  9. ALBUTEROL [Concomitant]
     Active Substance: ALBUTEROL
  10. ZYRTEC [Concomitant]
     Active Substance: CETIRIZINE HYDROCHLORIDE
  11. MUCINEX [Concomitant]
     Active Substance: GUAIFENESIN
  12. Probiotic accidophlis [Concomitant]
  13. FOLIC ACID [Concomitant]
     Active Substance: FOLIC ACID
  14. CALCIUM [Concomitant]
     Active Substance: CALCIUM
  15. FLONASE [Concomitant]
     Active Substance: FLUTICASONE PROPIONATE
  16. VITAMIN C [Concomitant]
     Active Substance: ASCORBIC ACID
  17. CYANOCOBALAMIN [Concomitant]
     Active Substance: CYANOCOBALAMIN
  18. VITAMIN D3 [Concomitant]
     Active Substance: CHOLECALCIFEROL
  19. BIOTIN [Concomitant]
     Active Substance: BIOTIN
  20. BROMELAINS [Concomitant]
     Active Substance: BROMELAINS
  21. Ciranleg [Concomitant]
  22. VITAMINS [Concomitant]
     Active Substance: VITAMINS
  23. COENZYME Q10 [Concomitant]
     Active Substance: DIETARY SUPPLEMENT\UBIDECARENONE
  24. VITAMIN K [Concomitant]
     Active Substance: PHYTONADIONE
  25. Neuropathy pill [Concomitant]
  26. L Theanine [Concomitant]
  27. Rhodrolu Rosea [Concomitant]

REACTIONS (1)
  - Urine odour abnormal [None]

NARRATIVE: CASE EVENT DATE: 20250103
